FAERS Safety Report 4892329-8 (Version None)
Quarter: 2006Q1

REPORT INFORMATION
  Report Type: 
  Country: None (occurrence: None)
  Receive Date: 20060126
  Receipt Date: 20051214
  Transmission Date: 20060701
  Serious: Yes (Hospitalization)
  Sender: FDA-Public Use
  Company Number: US-GLAXOSMITHKLINE-A0586110A

PATIENT
  Age: 60 Year
  Sex: Male

DRUGS (2)
  1. LAMICTAL [Suspect]
     Indication: BIPOLAR DISORDER
     Route: 048
     Dates: start: 20050811, end: 20051221
  2. SEROQUEL [Concomitant]

REACTIONS (4)
  - ANAPHYLACTIC REACTION [None]
  - FUNGAL INFECTION [None]
  - INFECTIOUS MONONUCLEOSIS [None]
  - RASH [None]
